FAERS Safety Report 5922746-6 (Version None)
Quarter: 2008Q3

REPORT INFORMATION
  Report Type: 
  Country: None (occurrence: None)
  Receive Date: 20080909
  Receipt Date: 20080711
  Transmission Date: 20090109
  Serious: Yes (Other)
  Sender: FDA-Public Use
  Company Number: 163-20785-08070665

PATIENT

DRUGS (1)
  1. THALOMID [Suspect]
     Indication: PYODERMA GANGRENOSUM
     Dosage: ORAL
     Route: 048

REACTIONS (1)
  - EMBOLISM [None]
